FAERS Safety Report 13497534 (Version 1)
Quarter: 2017Q2

REPORT INFORMATION
  Report Type: Spontaneous
  Country: BR (occurrence: BR)
  Receive Date: 20170428
  Receipt Date: 20170428
  Transmission Date: 20170830
  Serious: Yes (Other)
  Sender: FDA-Public Use
  Company Number: BR-BRACCO-000721

PATIENT
  Age: 55 Year
  Sex: Male

DRUGS (2)
  1. PROHANCE [Suspect]
     Active Substance: GADOTERIDOL
     Indication: NUCLEAR MAGNETIC RESONANCE IMAGING
     Dates: start: 20170112, end: 20170112
  2. SCOPOLAMINE [Concomitant]
     Active Substance: SCOPOLAMINE

REACTIONS (4)
  - Pruritus [Unknown]
  - Urticaria [Unknown]
  - Bradycardia [Unknown]
  - Blood pressure abnormal [Unknown]

NARRATIVE: CASE EVENT DATE: 20170112
